FAERS Safety Report 11818413 (Version 1)
Quarter: 2015Q4

REPORT INFORMATION
  Report Type: Spontaneous
  Country: US (occurrence: None)
  Receive Date: 20151209
  Receipt Date: 20151209
  Transmission Date: 20160305
  Serious: Yes (Hospitalization)
  Sender: FDA-Public Use
  Company Number: None

PATIENT
  Age: 82 Year
  Sex: Female
  Weight: 72.5 kg

DRUGS (17)
  1. AMLODIPINE [Concomitant]
     Active Substance: AMLODIPINE BESYLATE
  2. LASIX [Concomitant]
     Active Substance: FUROSEMIDE
  3. IMODIUM [Concomitant]
     Active Substance: LOPERAMIDE HYDROCHLORIDE
  4. ZOFRAN [Concomitant]
     Active Substance: ONDANSETRON HYDROCHLORIDE
  5. ZOLOFT [Concomitant]
     Active Substance: SERTRALINE HYDROCHLORIDE
  6. ATIVAN [Concomitant]
     Active Substance: LORAZEPAM
  7. KLONOPIN [Concomitant]
     Active Substance: CLONAZEPAM
  8. COLACE [Concomitant]
     Active Substance: DOCUSATE SODIUM
  9. DESYREL [Concomitant]
     Active Substance: TRAZODONE HYDROCHLORIDE
  10. ZOCOR [Concomitant]
     Active Substance: SIMVASTATIN
  11. COUMADIN [Suspect]
     Active Substance: WARFARIN SODIUM
     Indication: ATRIAL FIBRILLATION
     Route: 048
  12. LIPITOR [Concomitant]
     Active Substance: ATORVASTATIN CALCIUM
  13. COZAAR [Concomitant]
     Active Substance: LOSARTAN POTASSIUM
  14. PRILOSEC [Concomitant]
     Active Substance: OMEPRAZOLE MAGNESIUM
  15. OXYCONDONE [Concomitant]
  16. NORVASC [Concomitant]
     Active Substance: AMLODIPINE BESYLATE
  17. SYNTHROID [Concomitant]
     Active Substance: LEVOTHYROXINE SODIUM

REACTIONS (4)
  - International normalised ratio increased [None]
  - Hypotension [None]
  - Upper gastrointestinal haemorrhage [None]
  - Hypovolaemia [None]

NARRATIVE: CASE EVENT DATE: 20150422
